FAERS Safety Report 12432526 (Version 1)
Quarter: 2016Q2

REPORT INFORMATION
  Report Type: Spontaneous
  Country: BR (occurrence: BR)
  Receive Date: 20160603
  Receipt Date: 20160603
  Transmission Date: 20160815
  Serious: Yes (Other)
  Sender: FDA-Public Use
  Company Number: BR-009507513-1606BRA000902

PATIENT
  Sex: Female

DRUGS (4)
  1. PEMBROLIZUMAB. [Suspect]
     Active Substance: PEMBROLIZUMAB
     Indication: GLIOBLASTOMA
     Dosage: CYCLICAL
     Dates: end: 2016
  2. PEMBROLIZUMAB. [Suspect]
     Active Substance: PEMBROLIZUMAB
     Dosage: DOSE: HALF DOSE
     Dates: start: 20160530
  3. PERILLA ALCOHOL [Concomitant]
  4. LOMUSTINE. [Concomitant]
     Active Substance: LOMUSTINE

REACTIONS (4)
  - Product use issue [Unknown]
  - Underdose [Unknown]
  - Hepatotoxicity [Unknown]
  - Colitis [Unknown]

NARRATIVE: CASE EVENT DATE: 2016
